FAERS Safety Report 25958355 (Version 1)
Quarter: 2025Q4

REPORT INFORMATION
  Report Type: Spontaneous
  Country: US (occurrence: US)
  Receive Date: 20251024
  Receipt Date: 20251024
  Transmission Date: 20260118
  Serious: No
  Sender: GALPHARM INTERNATIONAL
  Company Number: US-PERRIGO-25US010054

PATIENT
  Age: 25 Year
  Sex: Female
  Weight: 92.971 kg

DRUGS (1)
  1. NICOTINE POLACRILEX [Suspect]
     Active Substance: NICOTINE
     Indication: Smoking cessation therapy
     Dosage: 4 MG, QD
     Route: 002
     Dates: start: 20250808, end: 20250809

REACTIONS (4)
  - Stomatitis [Recovered/Resolved]
  - Gingival pain [Recovered/Resolved]
  - Gingival erythema [Recovered/Resolved]
  - Gingival swelling [Recovered/Resolved]

NARRATIVE: CASE EVENT DATE: 20250808
